FAERS Safety Report 22155007 (Version 1)
Quarter: 2023Q1

REPORT INFORMATION
  Report Type: Report from Study
  Country: OM (occurrence: OM)
  Receive Date: 20230330
  Receipt Date: 20230330
  Transmission Date: 20230417
  Serious: Yes (Hospitalization)
  Sender: FDA-Public Use
  Company Number: OM-GLAXOSMITHKLINE-OM2023EME044707

PATIENT

DRUGS (1)
  1. MEPOLIZUMAB [Suspect]
     Active Substance: MEPOLIZUMAB
     Indication: Product used for unknown indication
     Dosage: 100 MG, Z (MONTHLY)
     Dates: start: 20220110

REACTIONS (2)
  - Asthma [Recovered/Resolved]
  - Drug ineffective [Unknown]
